FAERS Safety Report 12250169 (Version 1)
Quarter: 2016Q2

REPORT INFORMATION
  Report Type: Spontaneous
  Country: GB (occurrence: GB)
  Receive Date: 20160408
  Receipt Date: 20160408
  Transmission Date: 20160815
  Serious: Yes (Hospitalization)
  Sender: FDA-Public Use
  Company Number: GB-TEVA-648998ACC

PATIENT
  Age: 49 Year
  Sex: Male

DRUGS (12)
  1. MONTELUKAST [Suspect]
     Active Substance: MONTELUKAST SODIUM
     Indication: ASTHMA
     Dosage: 10 MILLIGRAM DAILY; AT NIGHT
     Route: 048
  2. TERBINAFINE. [Concomitant]
     Active Substance: TERBINAFINE
  3. OMEPRAZOLE. [Concomitant]
     Active Substance: OMEPRAZOLE
  4. SALBUTAMOL [Concomitant]
     Active Substance: ALBUTEROL
  5. SERETIDE [Concomitant]
     Active Substance: FLUTICASONE PROPIONATE\SALMETEROL XINAFOATE
     Dosage: 250
  6. AMLODIPINE [Concomitant]
     Active Substance: AMLODIPINE BESYLATE
  7. BENDROFLUMETHIAZIDE [Concomitant]
     Active Substance: BENDROFLUMETHIAZIDE
  8. COCODAMOL [Concomitant]
     Active Substance: ACETAMINOPHEN\CODEINE PHOSPHATE
  9. COAL TAR SOLUTION [Concomitant]
     Active Substance: COAL TAR
  10. RAMIPRIL. [Concomitant]
     Active Substance: RAMIPRIL
  11. NAPROXEN. [Concomitant]
     Active Substance: NAPROXEN
  12. BETAMETHASONE VALERATE. [Concomitant]
     Active Substance: BETAMETHASONE VALERATE

REACTIONS (2)
  - Palpitations [Recovering/Resolving]
  - Atrial flutter [Recovering/Resolving]
